FAERS Safety Report 24628037 (Version 1)
Quarter: 2024Q4

REPORT INFORMATION
  Report Type: Spontaneous
  Country: CN (occurrence: CN)
  Receive Date: 20241117
  Receipt Date: 20241117
  Transmission Date: 20250114
  Serious: Yes (Hospitalization, Other)
  Sender: ALEXION PHARMACEUTICALS
  Company Number: CN-ASTRAZENECA-202411CHN005937CN

PATIENT
  Age: 54 Year
  Weight: 65 kg

DRUGS (6)
  1. BRILINTA [Suspect]
     Active Substance: TICAGRELOR
     Indication: Antiplatelet therapy
     Dosage: 90 MILLIGRAM, BID
  2. BRILINTA [Suspect]
     Active Substance: TICAGRELOR
     Dosage: 90 MILLIGRAM, BID
  3. BRILINTA [Suspect]
     Active Substance: TICAGRELOR
     Dosage: 90 MILLIGRAM, BID
  4. BRILINTA [Suspect]
     Active Substance: TICAGRELOR
     Dosage: 90 MILLIGRAM, BID
  5. ASPIRIN [Suspect]
     Active Substance: ASPIRIN
     Indication: Antiplatelet therapy
     Dosage: 100 MILLIGRAM, QD
  6. ASPIRIN [Suspect]
     Active Substance: ASPIRIN
     Dosage: 100 MILLIGRAM, QD

REACTIONS (3)
  - Haematochezia [Recovering/Resolving]
  - Dizziness [Recovering/Resolving]
  - Asthenia [Recovering/Resolving]
